FAERS Safety Report 11390290 (Version 1)
Quarter: 2015Q3

REPORT INFORMATION
  Report Type: Spontaneous
  Country: US (occurrence: US)
  Receive Date: 20150818
  Receipt Date: 20150818
  Transmission Date: 20151125
  Serious: No
  Sender: FDA-Public Use
  Company Number: US-ROCHE-1347567

PATIENT
  Age: 55 Year
  Sex: Female

DRUGS (10)
  1. COMBIPATCH [Concomitant]
     Active Substance: ESTRADIOL\NORETHINDRONE ACETATE
     Route: 065
  2. RIBAVIRIN. [Suspect]
     Active Substance: RIBAVIRIN
     Dosage: TAKES AT NIGHT
     Route: 048
     Dates: start: 20140209
  3. SOVALDI [Concomitant]
     Active Substance: SOFOSBUVIR
     Indication: HEPATITIS C
     Route: 048
     Dates: start: 20140209
  4. CELEXA (UNITED STATES) [Concomitant]
     Indication: HEPATITIS C
     Route: 065
  5. PREDNISONE. [Concomitant]
     Active Substance: PREDNISONE
     Route: 065
  6. PEGASYS [Suspect]
     Active Substance: PEGINTERFERON ALFA-2A
     Indication: HEPATITIS C
     Route: 058
     Dates: start: 20140209
  7. VAGIFEM [Concomitant]
     Active Substance: ESTRADIOL
     Dosage: 2 PILLS A WEEK
     Route: 065
  8. RIBAVIRIN. [Suspect]
     Active Substance: RIBAVIRIN
     Indication: HEPATITIS C
     Dosage: TAKE IN THE MORNING
     Route: 048
     Dates: start: 20140209
  9. GLUCOPHAGE [Concomitant]
     Active Substance: METFORMIN HYDROCHLORIDE
     Indication: TYPE 2 DIABETES MELLITUS
     Dosage: 1000 MG TWICE A DAY
     Route: 065
  10. COENZYME Q10 [Concomitant]
     Active Substance: UBIDECARENONE

REACTIONS (5)
  - Type 2 diabetes mellitus [Not Recovered/Not Resolved]
  - Drug ineffective [Unknown]
  - Malaise [Not Recovered/Not Resolved]
  - Underdose [Unknown]
  - Accidental exposure to product [Unknown]

NARRATIVE: CASE EVENT DATE: 20140210
